FAERS Safety Report 19677637 (Version 4)
Quarter: 2021Q4

REPORT INFORMATION
  Report Type: Spontaneous
  Country: DK (occurrence: DK)
  Receive Date: 20210809
  Receipt Date: 20211004
  Transmission Date: 20220303
  Serious: Yes (Other)
  Sender: FDA-Public Use
  Company Number: DK-BAYER-2021-189439

PATIENT

DRUGS (1)
  1. EYLEA [Suspect]
     Active Substance: AFLIBERCEPT
     Indication: Product used for unknown indication
     Dosage: 1 DF, ONCE, LEFT EYE
     Route: 031
     Dates: start: 20210629, end: 20210629

REACTIONS (3)
  - Panophthalmitis [Recovering/Resolving]
  - Foreign body in eye [Recovering/Resolving]
  - Product impurity [Recovering/Resolving]

NARRATIVE: CASE EVENT DATE: 20210720
